FAERS Safety Report 4854225-1 (Version None)
Quarter: 2005Q4

REPORT INFORMATION
  Report Type: 
  Country: None (occurrence: None)
  Receive Date: 20051213
  Receipt Date: 20051213
  Transmission Date: 20060501
  Serious: Yes (Hospitalization)
  Sender: FDA-Public Use
  Company Number: None

PATIENT
  Age: 88 Year
  Sex: Male
  Weight: 65 kg

DRUGS (2)
  1. WARFARIN SODIUM [Suspect]
     Indication: ATRIAL FIBRILLATION
     Dosage: 4MG DAILY PO
     Route: 048
     Dates: start: 20000508, end: 20050930
  2. WARFARIN SODIUM [Suspect]
     Indication: CARDIOMYOPATHY
     Dosage: 4MG DAILY PO
     Route: 048
     Dates: start: 20000508, end: 20050930

REACTIONS (5)
  - ABASIA [None]
  - LOSS OF CONTROL OF LEGS [None]
  - NERVE COMPRESSION [None]
  - SPINAL CORD HAEMORRHAGE [None]
  - WHEELCHAIR USER [None]
